FAERS Safety Report 9146725 (Version 2)
Quarter: 2013Q1

REPORT INFORMATION
  Report Type: Report from Study
  Country: AU (occurrence: AU)
  Receive Date: 20130307
  Receipt Date: 20130312
  Transmission Date: 20140127
  Serious: Yes (Hospitalization, Other)
  Sender: FDA-Public Use
  Company Number: AU-ROCHE-1197556

PATIENT
  Age: 43 Year
  Sex: Female
  Weight: 78 kg

DRUGS (5)
  1. MABTHERA [Suspect]
     Indication: PEMPHIGOID
     Route: 042
     Dates: start: 201107
  2. FLUCONAZOLE [Concomitant]
     Indication: OESOPHAGEAL CANDIDIASIS
     Route: 048
     Dates: start: 2009
  3. NEXIUM [Concomitant]
     Indication: GASTROOESOPHAGEAL REFLUX DISEASE
     Route: 048
     Dates: start: 2007
  4. NAPROSYN [Concomitant]
     Indication: SACROILIITIS
     Route: 048
     Dates: start: 2007
  5. ZOLOFT [Concomitant]
     Route: 048
     Dates: start: 2007

REACTIONS (2)
  - Colitis ulcerative [Recovering/Resolving]
  - Sacroiliitis [Unknown]
